FAERS Safety Report 9541598 (Version 1)
Quarter: 2013Q3

REPORT INFORMATION
  Report Type: Spontaneous
  Country: FR (occurrence: FR)
  Receive Date: 20130923
  Receipt Date: 20130923
  Transmission Date: 20140515
  Serious: Yes (Hospitalization)
  Sender: FDA-Public Use
  Company Number: FR-JNJFOC-20130904563

PATIENT
  Age: 85 Year
  Sex: Female

DRUGS (7)
  1. RISPERDALORO [Suspect]
     Indication: PSYCHOTIC DISORDER
     Route: 048
     Dates: start: 20111118, end: 20111124
  2. SPAGULAX [Concomitant]
     Indication: CONSTIPATION
     Route: 048
  3. CHONDROSULF [Concomitant]
     Indication: PRODUCT USED FOR UNKNOWN INDICATION
     Route: 048
  4. SPASFON LYOC [Concomitant]
     Indication: PRODUCT USED FOR UNKNOWN INDICATION
     Dosage: IF NEEDED
     Route: 048
  5. TRANSIPEG [Concomitant]
     Indication: CONSTIPATION
     Route: 048
  6. ATENOLOL [Concomitant]
     Indication: CORONARY ARTERY INSUFFICIENCY
     Dosage: IF NEEDED
     Route: 048
  7. DOLIPRANE [Concomitant]
     Indication: PAIN
     Dosage: IF NEEDED
     Route: 048

REACTIONS (3)
  - Agitation [Recovered/Resolved]
  - Cerebellar syndrome [Unknown]
  - Delusion [Recovered/Resolved]
